FAERS Safety Report 7571827-2 (Version None)
Quarter: 2011Q2

REPORT INFORMATION
  Report Type: 
  Country: None (occurrence: None)
  Receive Date: 20110624
  Receipt Date: 20110620
  Transmission Date: 20111010
  Serious: Yes (Other)
  Sender: FDA-Public Use
  Company Number: GB-PFIZER INC-2011090662

PATIENT
  Sex: Female

DRUGS (1)
  1. LYRICA [Suspect]
     Indication: MUSCULOSKELETAL PAIN
     Dosage: UNK
     Dates: end: 20110401

REACTIONS (8)
  - CHEST PAIN [None]
  - DYSPNOEA [None]
  - PALPITATIONS [None]
  - VISION BLURRED [None]
  - HYPERSENSITIVITY [None]
  - MYALGIA [None]
  - GAIT DISTURBANCE [None]
  - CONTUSION [None]
